FAERS Safety Report 25525365 (Version 1)
Quarter: 2025Q3

REPORT INFORMATION
  Report Type: Spontaneous
  Country: US (occurrence: US)
  Receive Date: 20250707
  Receipt Date: 20250707
  Transmission Date: 20251021
  Serious: Yes (Hospitalization)
  Sender: MYLAN
  Company Number: US-MYLANLABS-2025M1055426

PATIENT
  Age: 60 Year
  Sex: Male

DRUGS (4)
  1. RIFAMPIN [Suspect]
     Active Substance: RIFAMPIN
     Indication: Device related infection
  2. RIFAMPIN [Suspect]
     Active Substance: RIFAMPIN
     Indication: Infection prophylaxis
  3. GENTAMICIN [Suspect]
     Active Substance: GENTAMICIN
     Indication: Device related infection
  4. GENTAMICIN [Suspect]
     Active Substance: GENTAMICIN
     Indication: Infection prophylaxis

REACTIONS (2)
  - Drug ineffective for unapproved indication [Unknown]
  - Off label use [Unknown]
